FAERS Safety Report 16978229 (Version 1)
Quarter: 2019Q4

REPORT INFORMATION
  Report Type: Spontaneous
  Country: US (occurrence: US)
  Receive Date: 20190914
  Receipt Date: 20190914
  Transmission Date: 20200122
  Serious: Yes (Hospitalization)
  Sender: FDA-Public Use
  Company Number: None

PATIENT
  Age: 75 Year
  Sex: Male
  Weight: 80.2 kg

DRUGS (3)
  1. VELCADE [Suspect]
     Active Substance: BORTEZOMIB
     Dates: end: 20160127
  2. LENALIDOMIDE (CC-5013) [Suspect]
     Active Substance: LENALIDOMIDE
     Dates: end: 20170301
  3. DEXAMETHASONE. [Suspect]
     Active Substance: DEXAMETHASONE
     Dates: end: 20160127

REACTIONS (10)
  - Plasma cell myeloma [None]
  - Exposure to chemical pollution [None]
  - Dyspnoea exertional [None]
  - Night sweats [None]
  - Tobacco user [None]
  - Endocarditis [None]
  - Cardiac arrest [None]
  - Cardiac failure [None]
  - Relapsing fever [None]
  - Staphylococcal sepsis [None]

NARRATIVE: CASE EVENT DATE: 20170302
